FAERS Safety Report 4904434-8 (Version None)
Quarter: 2006Q1

REPORT INFORMATION
  Report Type: 
  Country: None (occurrence: None)
  Receive Date: 20060113
  Receipt Date: 20051122
  Transmission Date: 20060701
  Serious: No
  Sender: FDA-Public Use
  Company Number: 2005SP004141

PATIENT
  Age: 83 Year
  Sex: Female
  Weight: 54.4316 kg

DRUGS (8)
  1. LUNESTA [Suspect]
     Indication: MIDDLE INSOMNIA
     Dosage: 2 MG; 3 MG : HS; ORAL
     Route: 048
     Dates: start: 20051101, end: 20051101
  2. LUNESTA [Suspect]
     Indication: MIDDLE INSOMNIA
     Dosage: 2 MG; 3 MG : HS; ORAL
     Route: 048
     Dates: start: 20050901
  3. AMLODIPINE BESYLATE [Concomitant]
  4. LISINOPRIL [Concomitant]
  5. FOSAMAX [Concomitant]
  6. ARICEPT [Concomitant]
  7. MULTIVITAMIN [Concomitant]
  8. ASPIRIN [Concomitant]

REACTIONS (3)
  - DIZZINESS [None]
  - DRUG INEFFECTIVE [None]
  - INSOMNIA [None]
